FAERS Safety Report 4865420-X (Version None)
Quarter: 2005Q4

REPORT INFORMATION
  Report Type: 
  Country: None (occurrence: None)
  Receive Date: 20051223
  Receipt Date: 20041203
  Transmission Date: 20060501
  Serious: Yes (Hospitalization)
  Sender: FDA-Public Use
  Company Number: JP-AVENTIS-200413889JP

PATIENT
  Sex: Male

DRUGS (3)
  1. LANTUS [Suspect]
     Route: 058
  2. OPTIPEN (INSULIN PUMP) [Suspect]
  3. OPTICLIK (INSULIN INJECTION PEN) [Suspect]

REACTIONS (2)
  - DIABETIC RETINOPATHY [None]
  - LUNG NEOPLASM [None]
